FAERS Safety Report 7648784-3 (Version None)
Quarter: 2011Q3

REPORT INFORMATION
  Report Type: 
  Country: None (occurrence: None)
  Receive Date: 20110801
  Receipt Date: 20110727
  Transmission Date: 20111222
  Serious: Yes (Death, Other)
  Sender: FDA-Public Use
  Company Number: PHHY2011BR67963

PATIENT
  Age: 86 Year
  Sex: Male

DRUGS (5)
  1. CLOMIPRAMINE HYDROCHLORIDE [Suspect]
     Dosage: 1 DF, BID
     Route: 048
  2. DAFLON [Concomitant]
     Dosage: 2 TABLET MONDAY TO FRIDAY
     Route: 048
  3. SEROQUEL [Suspect]
     Indication: DEMENTIA ALZHEIMER'S TYPE
  4. MIDAZOLAM HCL [Concomitant]
     Dosage: 1 DF, QHS
     Route: 048
  5. EXELON [Suspect]
     Indication: DEMENTIA ALZHEIMER'S TYPE
     Dosage: 9MG/5CM2 1 PATCH A DAY
     Route: 062
     Dates: start: 20100901

REACTIONS (7)
  - ABNORMAL BEHAVIOUR [None]
  - CARDIAC ARREST [None]
  - GAIT DISTURBANCE [None]
  - PULMONARY EMBOLISM [None]
  - OBSESSIVE-COMPULSIVE DISORDER [None]
  - THROMBOSIS [None]
  - AGITATION [None]
